FAERS Safety Report 6397416-3 (Version None)
Quarter: 2009Q4

REPORT INFORMATION
  Report Type: 
  Country: None (occurrence: None)
  Receive Date: 20091012
  Receipt Date: 20090928
  Transmission Date: 20100525
  Serious: Yes (Other)
  Sender: FDA-Public Use
  Company Number: PT-ASTRAZENECA-2009SE16161

PATIENT
  Age: 547 Month
  Sex: Female

DRUGS (2)
  1. NAROPIN [Suspect]
     Indication: PAIN
     Route: 024
     Dates: start: 20090907, end: 20090907
  2. LIDOCAINE [Suspect]
     Indication: PAIN
     Route: 058
     Dates: start: 20090907, end: 20090907

REACTIONS (11)
  - ANXIETY [None]
  - DYSPHAGIA [None]
  - DYSPNOEA [None]
  - FAECES DISCOLOURED [None]
  - HYPOTENSION [None]
  - INSOMNIA [None]
  - MONOPLEGIA [None]
  - NIGHTMARE [None]
  - SKIN REACTION [None]
  - TACHYCARDIA [None]
  - TREMOR [None]
